FAERS Safety Report 9459735 (Version 4)
Quarter: 2014Q1

REPORT INFORMATION
  Report Type: Report from Study
  Country: DE (occurrence: DE)
  Receive Date: 20130815
  Receipt Date: 20140313
  Transmission Date: 20141002
  Serious: Yes (Hospitalization)
  Sender: FDA-Public Use
  Company Number: DE-ROCHE-1260630

PATIENT
  Sex: Male

DRUGS (32)
  1. RITUXIMAB [Suspect]
     Indication: B-CELL LYMPHOMA
     Dosage: DATE OF LAST DOSE PRIOR TO SAE: 27/JUL/2013
     Route: 042
     Dates: start: 20130724
  2. RITUXIMAB [Suspect]
     Route: 042
     Dates: start: 20130808, end: 20130808
  3. VINCRISTINE [Suspect]
     Indication: B-CELL LYMPHOMA
     Dosage: DATE OF LAST DOSE PRIOR TO SAE: 25/JUL/2013
     Route: 042
     Dates: start: 20130725
  4. VINCRISTINE [Suspect]
     Route: 042
     Dates: start: 20130810, end: 20130810
  5. PREDNISONE [Suspect]
     Indication: B-CELL LYMPHOMA
     Dosage: DATE OF LAST DOSE PRIOR TO SAE(SEROMA): 25/JUL/2013
     Route: 048
     Dates: start: 20130725, end: 20130729
  6. PREDNISONE [Suspect]
     Route: 048
     Dates: start: 20130809, end: 20130813
  7. PEGFILGRASTIM [Suspect]
     Indication: B-CELL LYMPHOMA
     Route: 058
     Dates: start: 20130728
  8. PEGFILGRASTIM [Suspect]
     Route: 058
     Dates: start: 20130813, end: 20130813
  9. CYCLOPHOSPHAMIDE [Suspect]
     Indication: B-CELL LYMPHOMA
     Dosage: DATE OF LAST DOSE PRIOR TO SAE: 25/JUL/2013
     Route: 042
     Dates: start: 20130725
  10. CYCLOPHOSPHAMIDE [Suspect]
     Route: 042
     Dates: start: 20130809, end: 20130809
  11. DOXORUBICIN [Suspect]
     Indication: B-CELL LYMPHOMA
     Dosage: DATE OF LAST DOSE PRIOR TO SAE: 25/JUL/2013
     Route: 042
     Dates: start: 20130725
  12. DOXORUBICIN [Suspect]
     Route: 042
     Dates: start: 20130809, end: 20130809
  13. ENALAPRIL MALEATE [Concomitant]
     Indication: HYPERTENSION
     Route: 048
     Dates: start: 20130708
  14. AMLODIPINE [Concomitant]
     Indication: HYPERTENSION
     Route: 048
     Dates: start: 20130708
  15. ALLOPURINOL [Concomitant]
     Indication: HYPERURICAEMIA
     Route: 048
     Dates: start: 20130708
  16. SULFAMETHOXAZOLE/TRIMETHOPRIM [Concomitant]
     Indication: PROPHYLAXIS
     Route: 048
  17. ACICLOVIR [Concomitant]
     Indication: ANTIVIRAL PROPHYLAXIS
     Route: 048
     Dates: start: 20130723
  18. SULFAMETHOXAZOL [Concomitant]
     Indication: ANTIFUNGAL PROPHYLAXIS
     Route: 048
     Dates: start: 20130725
  19. CHLORTALIDON [Concomitant]
     Indication: HYPERTENSION
     Route: 048
     Dates: start: 20130708
  20. LEVOTHYROXINE SODIUM [Concomitant]
     Indication: HYPOTHYROIDISM
     Route: 048
     Dates: start: 20130708
  21. GRANISETRON [Concomitant]
     Indication: VOMITING
     Route: 042
     Dates: start: 20130809, end: 20130810
  22. AMPHOTERICIN B [Concomitant]
     Indication: PROPHYLAXIS
     Route: 048
     Dates: start: 20130806
  23. PANTOPRAZOL [Concomitant]
     Indication: PROPHYLAXIS
     Route: 048
     Dates: start: 20130807, end: 20130810
  24. ZOPICLONE [Concomitant]
     Indication: INSOMNIA
     Route: 048
     Dates: start: 20130807, end: 20130809
  25. VANCOMYCIN [Concomitant]
     Route: 042
     Dates: start: 20130806, end: 20130806
  26. TRIMETHOPRIM [Concomitant]
     Route: 048
     Dates: start: 20130725
  27. ALIZAPRID HCL [Concomitant]
     Indication: VOMITING
     Route: 042
     Dates: start: 20130809, end: 20130810
  28. MESNA [Concomitant]
     Route: 042
     Dates: start: 20130809, end: 20130809
  29. FUROSEMIDE [Concomitant]
     Route: 042
     Dates: start: 20130810, end: 20130811
  30. CERTOPARIN SODIUM [Concomitant]
     Route: 058
     Dates: start: 20130806, end: 20130810
  31. METAMIZOLE [Concomitant]
     Indication: BACK PAIN
     Route: 048
     Dates: start: 20130620
  32. ENOXAPARIN SODIUM [Concomitant]
     Route: 058
     Dates: start: 20130815

REACTIONS (2)
  - Seroma [Recovered/Resolved]
  - Febrile neutropenia [Recovered/Resolved]
